FAERS Safety Report 4501234-8 (Version None)
Quarter: 2004Q3

REPORT INFORMATION
  Report Type: 
  Country: None (occurrence: None)
  Receive Date: 20040927
  Receipt Date: 20040610
  Transmission Date: 20050211
  Serious: No
  Sender: FDA-Public Use
  Company Number: US_0404102201

PATIENT
  Age: 15 Year
  Sex: Female

DRUGS (1)
  1. STRATTERA [Suspect]
     Indication: ATTENTION DEFICIT/HYPERACTIVITY DISORDER
     Dosage: 60 MG/1 DAY
     Route: 048
     Dates: start: 20040301

REACTIONS (9)
  - BACK PAIN [None]
  - DIZZINESS [None]
  - FLUSHING [None]
  - HEADACHE [None]
  - MYALGIA [None]
  - PALPITATIONS [None]
  - PERIPHERAL COLDNESS [None]
  - SOMNOLENCE [None]
  - THROAT IRRITATION [None]
